FAERS Safety Report 17900201 (Version 4)
Quarter: 2020Q4

REPORT INFORMATION
  Report Type: Spontaneous
  Country: LU (occurrence: LU)
  Receive Date: 20200616
  Receipt Date: 20201102
  Transmission Date: 20210113
  Serious: Yes (Life-Threatening, Hospitalization, Other)
  Sender: FDA-Public Use
  Company Number: LU-PFIZER INC-2020231559

PATIENT
  Age: 18 Year
  Sex: Female

DRUGS (4)
  1. PIROXICAM. [Suspect]
     Active Substance: PIROXICAM
     Indication: CERVICOGENIC HEADACHE
  2. LIDOCAINE. [Suspect]
     Active Substance: LIDOCAINE
     Indication: LOCAL ANAESTHESIA
     Dosage: 30 MG/3 ML, SINGLE
  3. PIROXICAM. [Suspect]
     Active Substance: PIROXICAM
     Indication: ANALGESIC INTERVENTION SUPPORTIVE THERAPY
     Dosage: 20 MG/3 ML, SINGLE
  4. METAMIZOLE [Suspect]
     Active Substance: METAMIZOLE
     Indication: ANALGESIC INTERVENTION SUPPORTIVE THERAPY
     Dosage: 500 MG/ML, SINGLE

REACTIONS (6)
  - Wrong technique in product usage process [Recovered/Resolved]
  - Off label use [Unknown]
  - Cerebellar syndrome [Recovered/Resolved]
  - Product use in unapproved indication [Unknown]
  - Product administered at inappropriate site [Unknown]
  - Toxicity to various agents [Recovered/Resolved]
